FAERS Safety Report 4729315-4 (Version None)
Quarter: 2005Q3

REPORT INFORMATION
  Report Type: 
  Country: None (occurrence: None)
  Receive Date: 20050729
  Receipt Date: 20050719
  Transmission Date: 20060218
  Serious: Yes (Hospitalization)
  Sender: FDA-Public Use
  Company Number: PHEH2005US07969

PATIENT
  Age: 64 Year
  Sex: Male
  Weight: 150 kg

DRUGS (7)
  1. LAMISIL [Suspect]
     Indication: NAIL TINEA
     Dosage: UNK, UNK
     Route: 048
     Dates: start: 20041001
  2. MULTI-VITAMINS [Concomitant]
     Route: 048
  3. CALCIUM GLUCONATE [Concomitant]
     Route: 048
  4. ASCORBIC ACID [Concomitant]
     Route: 048
  5. ASPIRIN [Concomitant]
  6. LISINOPRIL [Concomitant]
     Indication: HYPERTENSION
  7. TERAZOSIN [Concomitant]
     Indication: BENIGN PROSTATIC HYPERPLASIA

REACTIONS (43)
  - ABDOMINAL PAIN [None]
  - ALANINE AMINOTRANSFERASE INCREASED [None]
  - ANAEMIA OF CHRONIC DISEASE [None]
  - ASPARTATE AMINOTRANSFERASE INCREASED [None]
  - ASTHENIA [None]
  - BLOOD CREATINE PHOSPHOKINASE MB INCREASED [None]
  - BLOOD CREATININE INCREASED [None]
  - BLOOD LACTIC ACID INCREASED [None]
  - BLOOD PRESSURE DECREASED [None]
  - CHROMATURIA [None]
  - CIRCULATORY COLLAPSE [None]
  - CONVULSION [None]
  - COUGH [None]
  - DIFFICULTY IN WALKING [None]
  - DYSPNOEA [None]
  - FEELING ABNORMAL [None]
  - HEPATOCELLULAR DAMAGE [None]
  - HYPERGLYCAEMIA [None]
  - HYPOTENSION [None]
  - HYPOVOLAEMIC SHOCK [None]
  - INFLUENZA LIKE ILLNESS [None]
  - INSOMNIA [None]
  - LACRIMATION INCREASED [None]
  - METABOLIC ACIDOSIS [None]
  - MUSCLE INJURY [None]
  - MUSCULAR WEAKNESS [None]
  - MYALGIA [None]
  - MYOGLOBINURIA [None]
  - MYOSITIS [None]
  - NEUTROPHIL COUNT ABNORMAL [None]
  - NIGHT SWEATS [None]
  - OLIGURIA [None]
  - PAIN IN EXTREMITY [None]
  - PNEUMONIA [None]
  - RENAL FAILURE ACUTE [None]
  - RENAL TUBULAR NECROSIS [None]
  - RHABDOMYOLYSIS [None]
  - SEPSIS [None]
  - SOMNOLENCE [None]
  - SYNCOPE [None]
  - TACHYCARDIA [None]
  - TREMOR [None]
  - WHITE BLOOD CELL COUNT INCREASED [None]
